FAERS Safety Report 24584411 (Version 2)
Quarter: 2025Q3

REPORT INFORMATION
  Report Type: Spontaneous
  Country: TW (occurrence: TW)
  Receive Date: 20241106
  Receipt Date: 20250803
  Transmission Date: 20251021
  Serious: Yes (Other)
  Sender: ALEXION PHARMACEUTICALS
  Company Number: TW-AstraZeneca-CH-00735799A

PATIENT
  Age: 60 Year
  Sex: Male

DRUGS (3)
  1. SOLIRIS [Suspect]
     Active Substance: ECULIZUMAB
     Indication: Paroxysmal nocturnal haemoglobinuria
     Route: 065
  2. SOLIRIS [Suspect]
     Active Substance: ECULIZUMAB
     Dosage: 1200 MILLIGRAM, Q2W
     Route: 065
     Dates: end: 2021
  3. WARFARIN [Suspect]
     Active Substance: WARFARIN
     Route: 065

REACTIONS (7)
  - Pneumonia pneumococcal [Unknown]
  - Infectious pleural effusion [Unknown]
  - Cerebrovascular accident [Unknown]
  - Hepatic vein thrombosis [Unknown]
  - Portal vein thrombosis [Unknown]
  - Breakthrough haemolysis [Unknown]
  - Off label use [Unknown]

NARRATIVE: CASE EVENT DATE: 20190101
